FAERS Safety Report 11343490 (Version 1)
Quarter: 2015Q3

REPORT INFORMATION
  Report Type: Spontaneous
  Country: FR (occurrence: FR)
  Receive Date: 20150806
  Receipt Date: 20150806
  Transmission Date: 20151125
  Serious: Yes (Hospitalization)
  Sender: FDA-Public Use
  Company Number: FR-ASTRAZENECA-2015SE75755

PATIENT
  Age: 41 Year
  Sex: Female

DRUGS (11)
  1. IMUREL [Concomitant]
     Active Substance: AZATHIOPRINE SODIUM
     Dates: end: 20150709
  2. EUPRESSYL [Concomitant]
     Active Substance: URAPIDIL
  3. INEXIUM [Concomitant]
     Active Substance: ESOMEPRAZOLE
  4. RAMIPRIL. [Concomitant]
     Active Substance: RAMIPRIL
  5. BACLOFENE [Concomitant]
     Active Substance: BACLOFEN
  6. PAROXETINE [Concomitant]
     Active Substance: PAROXETINE\PAROXETINE HYDROCHLORIDE
  7. ROVALCYTE [Concomitant]
     Active Substance: VALGANCICLOVIR HYDROCHLORIDE
  8. LOVAVULO [Concomitant]
  9. XEROQUEL [Suspect]
     Active Substance: QUETIAPINE FUMARATE
     Indication: CHILDHOOD PSYCHOSIS
     Route: 048
     Dates: start: 201503, end: 20150716
  10. ADVAGRAF [Concomitant]
     Active Substance: TACROLIMUS
  11. CELLCEPT [Concomitant]
     Active Substance: MYCOPHENOLATE MOFETIL\MYCOPHENOLATE MOFETIL HYDROCHLORIDE
     Dates: end: 20150708

REACTIONS (3)
  - Hepatitis [Recovering/Resolving]
  - Off label use [Recovered/Resolved]
  - Product use issue [Recovered/Resolved]

NARRATIVE: CASE EVENT DATE: 201503
